FAERS Safety Report 8494410-3 (Version None)
Quarter: 2012Q3

REPORT INFORMATION
  Report Type: 
  Country: None (occurrence: None)
  Receive Date: 20120709
  Receipt Date: 20120704
  Transmission Date: 20120928
  Serious: Yes (Death)
  Sender: FDA-Public Use
  Company Number: US-SANOFI-AVENTIS-2012SA006565

PATIENT
  Age: 82 Year
  Sex: Female

DRUGS (16)
  1. CLOPIDOGREL [Suspect]
     Route: 048
  2. METFORMIN HYDROCHLORIDE/SITAGLIPTIN PHOSPHATE [Suspect]
     Route: 048
  3. DILTIAZEM HCL [Suspect]
     Route: 048
  4. CLOPIDOGREL [Suspect]
     Route: 065
  5. CHLORPROMAZINE HCL [Suspect]
     Route: 065
  6. SITAGLIPTIN AND METFORMIN HYDROCHLORIDE [Suspect]
     Route: 065
  7. METFORMIN HYDROCHLORIDE/SITAGLIPTIN PHOSPHATE [Suspect]
     Route: 048
  8. CHLORPROMAZINE HCL [Suspect]
     Route: 048
  9. METFORMIN HYDROCHLORIDE/SITAGLIPTIN PHOSPHATE [Suspect]
     Route: 065
  10. DILTIAZEM HCL [Suspect]
     Route: 048
  11. DILTIAZEM HCL [Suspect]
     Route: 048
  12. CHLORPROMAZINE HCL [Suspect]
     Route: 065
  13. CLOPIDOGREL [Suspect]
     Route: 065
  14. CLOPIDOGREL [Suspect]
     Route: 048
  15. DILTIAZEM HCL [Suspect]
     Route: 048
  16. CHLORPROMAZINE HCL [Suspect]
     Route: 048

REACTIONS (2)
  - COMPLETED SUICIDE [None]
  - MULTIPLE DRUG OVERDOSE [None]
